FAERS Safety Report 6023750-2 (Version None)
Quarter: 2008Q4

REPORT INFORMATION
  Report Type: 
  Country: None (occurrence: None)
  Receive Date: 20081230
  Receipt Date: 20081219
  Transmission Date: 20090506
  Serious: Yes (Hospitalization, Other)
  Sender: FDA-Public Use
  Company Number: US-AMGEN-QUU323372

PATIENT
  Sex: Female

DRUGS (2)
  1. ENBREL [Suspect]
     Indication: PSORIATIC ARTHROPATHY
     Route: 058
     Dates: start: 20040801
  2. METHOTREXATE [Concomitant]
     Route: 048

REACTIONS (4)
  - ARTHRALGIA [None]
  - JOINT INSTABILITY [None]
  - PSORIATIC ARTHROPATHY [None]
  - WEIGHT BEARING DIFFICULTY [None]
